FAERS Safety Report 19421384 (Version 2)
Quarter: 2021Q3

REPORT INFORMATION
  Report Type: Spontaneous
  Country: US (occurrence: US)
  Receive Date: 20210615
  Receipt Date: 20210810
  Transmission Date: 20211014
  Serious: No
  Sender: FDA-Public Use
  Company Number: US-ALXN-A202106773

PATIENT
  Age: 27 Year
  Sex: Female

DRUGS (1)
  1. ULTOMIRIS [Suspect]
     Active Substance: RAVULIZUMAB-CWVZ
     Indication: PAROXYSMAL NOCTURNAL HAEMOGLOBINURIA
     Dosage: UNK
     Route: 065
     Dates: start: 202005

REACTIONS (4)
  - Platelet count decreased [Unknown]
  - Haemoglobin decreased [Unknown]
  - Facial spasm [Unknown]
  - Muscle spasms [Unknown]

NARRATIVE: CASE EVENT DATE: 2021
